FAERS Safety Report 9922116 (Version 1)
Quarter: 2014Q1

REPORT INFORMATION
  Report Type: Spontaneous
  Country: TR (occurrence: TR)
  Receive Date: 20140225
  Receipt Date: 20140225
  Transmission Date: 20141002
  Serious: Yes (Hospitalization, Other)
  Sender: FDA-Public Use
  Company Number: PHHY2014TR019773

PATIENT
  Age: 9 Year
  Sex: Female

DRUGS (2)
  1. CLONAZEPAM [Suspect]
     Indication: CONVULSION
     Dosage: 0.05 MG/KG, UNK
  2. OXCARBAZEPINE [Suspect]
     Indication: CONVULSION
     Dosage: 22 MG/KG, UNK

REACTIONS (3)
  - Convulsion [Recovered/Resolved]
  - Hepatotoxicity [Recovered/Resolved]
  - Liver function test abnormal [Recovered/Resolved]
